FAERS Safety Report 18914254 (Version 7)
Quarter: 2021Q2

REPORT INFORMATION
  Report Type: Report from Study
  Country: UA (occurrence: UA)
  Receive Date: 20210218
  Receipt Date: 20210420
  Transmission Date: 20210717
  Serious: Yes (Hospitalization)
  Sender: FDA-Public Use
  Company Number: UA-CELGENEUS-UKR-20210203356

PATIENT
  Age: 42 Year
  Sex: Female
  Weight: 63.6 kg

DRUGS (10)
  1. OZANIMOD. [Suspect]
     Active Substance: OZANIMOD
     Route: 048
     Dates: start: 20150929, end: 20151221
  2. OZANIMOD. [Suspect]
     Active Substance: OZANIMOD
     Route: 048
     Dates: start: 20161114, end: 20201026
  3. OZANIMOD. [Suspect]
     Active Substance: OZANIMOD
     Route: 048
     Dates: start: 20160621, end: 20160920
  4. OZANIMOD. [Suspect]
     Active Substance: OZANIMOD
     Indication: RELAPSING MULTIPLE SCLEROSIS
     Route: 048
     Dates: start: 20150922, end: 20150925
  5. OZANIMOD. [Suspect]
     Active Substance: OZANIMOD
     Route: 030
     Dates: start: 20150922
  6. OZANIMOD. [Suspect]
     Active Substance: OZANIMOD
     Route: 048
     Dates: start: 20160321, end: 20160620
  7. OZANIMOD. [Suspect]
     Active Substance: OZANIMOD
     Route: 048
     Dates: start: 20160921, end: 20161113
  8. OZANIMOD. [Suspect]
     Active Substance: OZANIMOD
     Route: 030
     Dates: start: 20161108
  9. OZANIMOD. [Suspect]
     Active Substance: OZANIMOD
     Route: 048
     Dates: start: 20150926, end: 20150928
  10. OZANIMOD. [Suspect]
     Active Substance: OZANIMOD
     Route: 048
     Dates: start: 20151222, end: 20160320

REACTIONS (1)
  - Borderline serous tumour of ovary [Recovered/Resolved]

NARRATIVE: CASE EVENT DATE: 202011
